FAERS Safety Report 13017390 (Version 1)
Quarter: 2016Q4

REPORT INFORMATION
  Report Type: Spontaneous
  Country: US (occurrence: US)
  Receive Date: 20161212
  Receipt Date: 20161212
  Transmission Date: 20170207
  Serious: No
  Sender: FDA-Public Use
  Company Number: US-BAYER-2016-229936

PATIENT
  Sex: Female

DRUGS (1)
  1. MIDOL EXTENDED RELIEF [Suspect]
     Active Substance: NAPROXEN SODIUM
     Indication: MENSTRUAL DISORDER
     Dosage: 8 TIMES
     Route: 048
     Dates: start: 201609

REACTIONS (5)
  - Feeling jittery [Unknown]
  - Anxiety [Unknown]
  - Nervousness [Unknown]
  - Dizziness [Unknown]
  - Nausea [Unknown]
